FAERS Safety Report 4329988-4 (Version None)
Quarter: 2004Q1

REPORT INFORMATION
  Report Type: 
  Country: None (occurrence: None)
  Receive Date: 20040329
  Receipt Date: 20040315
  Transmission Date: 20041129
  Serious: No
  Sender: FDA-Public Use
  Company Number: 04H-028-0253743-00

PATIENT
  Age: 14 Year
  Sex: Female
  Weight: 46.2 kg

DRUGS (10)
  1. BUPIVACAINE HCL [Suspect]
     Indication: ANAESTHESIA
     Dosage: 5 ML, INITIAL LOADING DOSE ONCE, EPIDURAL (SEE IMAGE)
     Route: 008
  2. LIDOCAINE HYDROCHLORIDE 2%/EPI. 1:200,000 INJECTION [Suspect]
     Indication: ANAESTHESIA
     Dosage: 5 ML, TEST DOSE ONCE; EPIDURAL (SEE IMAGE)
     Route: 008
  3. FENTANYL [Suspect]
     Indication: ANAESTHESIA
     Dosage: 1MCG/ML, INFUSION, EPIDURAL
     Route: 008
  4. PROPOFOL [Concomitant]
  5. ROCURONIUM [Concomitant]
  6. DESFLURANE [Concomitant]
  7. ........ [Concomitant]
  8. ............ [Concomitant]
  9. OXYGEN [Concomitant]
  10. NITROUS OXIDE [Concomitant]

REACTIONS (3)
  - ANAESTHETIC COMPLICATION [None]
  - APNOEA [None]
  - PUPIL FIXED [None]
